FAERS Safety Report 17139674 (Version 1)
Quarter: 2019Q4

REPORT INFORMATION
  Report Type: Spontaneous
  Country: SE (occurrence: SE)
  Receive Date: 20191211
  Receipt Date: 20191211
  Transmission Date: 20200122
  Serious: Yes (Hospitalization, Other)
  Sender: FDA-Public Use
  Company Number: SE-AUROBINDO-AUR-APL-2019-104552

PATIENT
  Age: 29 Year
  Sex: Female

DRUGS (6)
  1. THERALEN [Suspect]
     Active Substance: TRIMEPRAZINE
     Indication: PRODUCT USED FOR UNKNOWN INDICATION
     Dosage: ^25 THERALEN^, ^INTAKE YESTERDAY AT 23:30, AND OTHER HALF AT 17-18^
     Route: 048
     Dates: start: 20180818
  2. LERGIGAN [PROMETHAZINE HYDROCHLORIDE] [Suspect]
     Active Substance: PROMETHAZINE HYDROCHLORIDE
     Indication: PRODUCT USED FOR UNKNOWN INDICATION
     Dosage: 25 MILLIGRAM (5X5 MG = 25 MG. ^INTAKE YESTERDAY AT 23:30, AND THE OTHER HALF 17-18)
     Route: 048
     Dates: start: 20180818
  3. QUETIAPINE. [Suspect]
     Active Substance: QUETIAPINE
     Indication: PRODUCT USED FOR UNKNOWN INDICATION
     Dosage: 600 MILLIGRAM (24X25MG = 600 MG, ^INTAKE YESTERDAY AT 23 HALF, AND OTHER HALF AT 17-18^)
     Route: 048
     Dates: start: 20180818
  4. OXASCAND [Suspect]
     Active Substance: OXAZEPAM
     Indication: PRODUCT USED FOR UNKNOWN INDICATION
     Dosage: 100 MILLIGRAM (20X5 MG = 100 MG. ^INTAKE YESTERDAY AT 23:30, AND THE OTHER HALF 17-18^)
     Route: 048
     Dates: start: 20180818
  5. PROPAVAN [Suspect]
     Active Substance: PROPIOMAZINE
     Indication: PRODUCT USED FOR UNKNOWN INDICATION
     Dosage: 500 MILLIGRAM ( ^INTAKE YESTERDAY AT 23:30, AND OTHER HALF AT 17-18)
     Route: 048
     Dates: start: 20180818
  6. OLANZAPINE. [Suspect]
     Active Substance: OLANZAPINE
     Indication: PRODUCT USED FOR UNKNOWN INDICATION
     Dosage: 60 MILLIGRAM (24X2.5 MG = 60 MG. ^INTAKE YESTERDAY AT 23:30, AND THE OTHER HALF 17-18^)
     Route: 048
     Dates: start: 20180818

REACTIONS (2)
  - Intentional overdose [Unknown]
  - Intentional self-injury [Unknown]

NARRATIVE: CASE EVENT DATE: 20180818
